FAERS Safety Report 7126641-9 (Version None)
Quarter: 2010Q4

REPORT INFORMATION
  Report Type: 
  Country: None (occurrence: None)
  Receive Date: 20101129
  Receipt Date: 20101122
  Transmission Date: 20110411
  Serious: Yes (Hospitalization)
  Sender: FDA-Public Use
  Company Number: US-US-EMD SERONO, INC.-7029200

PATIENT
  Sex: Male
  Weight: 73 kg

DRUGS (4)
  1. SEROSTIM [Suspect]
     Indication: HIV WASTING SYNDROME
     Dates: start: 20040101
  2. UNSPECIFIED MEDICATION [Concomitant]
  3. VITAMIN B-12 [Concomitant]
  4. TESTOSTERONE [Concomitant]

REACTIONS (6)
  - ATRIAL FIBRILLATION [None]
  - ATRIAL FLUTTER [None]
  - CARDIAC FAILURE CONGESTIVE [None]
  - GOUT [None]
  - RENAL IMPAIRMENT [None]
  - THROMBOSIS [None]
